FAERS Safety Report 7044381-1 (Version None)
Quarter: 2010Q4

REPORT INFORMATION
  Report Type: 
  Country: None (occurrence: None)
  Receive Date: 20101014
  Receipt Date: 20100324
  Transmission Date: 20110411
  Serious: Yes (Other)
  Sender: FDA-Public Use
  Company Number: US-BAYER-200937451NA

PATIENT
  Age: 16 Year
  Sex: Female
  Weight: 44 kg

DRUGS (24)
  1. YAZ [Suspect]
     Indication: CONTRACEPTION
     Route: 048
     Dates: start: 20080201, end: 20090101
  2. OCELLA [Suspect]
     Indication: CONTRACEPTION
     Route: 048
     Dates: start: 20090101, end: 20090501
  3. AMOXICILLIN [Concomitant]
     Route: 065
  4. PENICILLIN [Concomitant]
     Route: 065
  5. AZITHROMYCIN [Concomitant]
     Route: 065
  6. NAPROXEN [Concomitant]
     Route: 065
  7. ADVIL [Concomitant]
  8. BUTAL [Concomitant]
     Route: 065
     Dates: start: 20080101
  9. ALLEGRA [Concomitant]
     Indication: MULTIPLE ALLERGIES
     Route: 065
     Dates: start: 20080101, end: 20090101
  10. ALBUTEROL [Concomitant]
     Indication: COUGH
     Dosage: 1 TO 2 PUFFS
     Route: 065
  11. GARDASIL [Concomitant]
     Route: 065
  12. ZITHROMAX [Concomitant]
     Indication: BRONCHITIS
  13. ACETAMINOPHEN [Concomitant]
     Route: 065
     Dates: start: 20081101, end: 20081101
  14. ACETAMINOPHEN AND HYDROCODONE BITARTRATE [Concomitant]
     Route: 065
     Dates: start: 20081101, end: 20081101
  15. NALOXONE HYDROCHLORIDE [Concomitant]
     Route: 042
     Dates: start: 20081101, end: 20081101
  16. HEPARIN [Concomitant]
     Route: 058
     Dates: start: 20081101, end: 20081101
  17. DIPHENHYDRAMINE HYDROCHLORIDE [Concomitant]
     Route: 042
     Dates: start: 20081101, end: 20081101
  18. ONDANSETRON HYDROCHLORIDE [Concomitant]
     Dates: start: 20081101, end: 20081101
  19. HYDROMORPHONE HYDROCHLORIDE [Concomitant]
     Route: 065
     Dates: start: 20081101, end: 20081101
  20. CEFAZOLIN [Concomitant]
     Route: 065
     Dates: start: 20081101, end: 20081101
  21. PEPCID [Concomitant]
     Indication: DUODENITIS
     Route: 065
  22. SEASONIQUE [Concomitant]
     Route: 065
     Dates: start: 20080501
  23. PROAIR HFA [Concomitant]
     Route: 065
     Dates: start: 20081101
  24. PROCHLIORPRERAZINE [Concomitant]
     Route: 065
     Dates: start: 20090101

REACTIONS (9)
  - ABDOMINAL PAIN LOWER [None]
  - ABDOMINAL PAIN UPPER [None]
  - ABDOMINAL TENDERNESS [None]
  - CHILLS [None]
  - CHOLECYSTITIS CHRONIC [None]
  - DECREASED APPETITE [None]
  - DIARRHOEA [None]
  - NAUSEA [None]
  - VOMITING [None]
